FAERS Safety Report 5263548-6 (Version None)
Quarter: 2007Q1

REPORT INFORMATION
  Report Type: 
  Country: None (occurrence: None)
  Receive Date: 20070313
  Receipt Date: 20070226
  Transmission Date: 20070707
  Serious: Yes (Hospitalization)
  Sender: FDA-Public Use
  Company Number: US-AMGEN-US212710

PATIENT
  Sex: Female

DRUGS (4)
  1. ENBREL [Suspect]
     Indication: ANKYLOSING SPONDYLITIS
     Route: 058
     Dates: start: 20061006
  2. NEXIUM [Concomitant]
  3. KLONOPIN [Concomitant]
  4. TOPROL-XL [Concomitant]

REACTIONS (3)
  - CHOLELITHIASIS [None]
  - GALLBLADDER OPERATION [None]
  - HERPES ZOSTER [None]
